FAERS Safety Report 12449038 (Version 1)
Quarter: 2016Q2

REPORT INFORMATION
  Report Type: Spontaneous
  Country: US (occurrence: US)
  Receive Date: 20160608
  Receipt Date: 20160608
  Transmission Date: 20160815
  Serious: Yes (Other)
  Sender: FDA-Public Use
  Company Number: US-BAYER-2016-110782

PATIENT
  Sex: Female

DRUGS (1)
  1. MIRENA [Suspect]
     Active Substance: LEVONORGESTREL
     Dosage: 20 MCG/24HR, CONT
     Route: 015
     Dates: start: 2011, end: 2014

REACTIONS (10)
  - Ovarian cyst [None]
  - Hypoaesthesia [None]
  - Alopecia [None]
  - Autoimmune thyroiditis [None]
  - Fungal infection [None]
  - Progesterone decreased [None]
  - Amenorrhoea [None]
  - Anxiety [None]
  - Psychotic disorder [None]
  - Lactation disorder [None]

NARRATIVE: CASE EVENT DATE: 2011
